FAERS Safety Report 7518306 (Version 10)
Quarter: 2014Q1

REPORT INFORMATION
  Report Type: Spontaneous
  Country: US (occurrence: US)
  Receive Date: 20100802
  Receipt Date: 20140331
  Transmission Date: 20141002
  Serious: Yes (Other)
  Sender: FDA-Public Use
  Company Number: US-ALEXION-A201000875

PATIENT
  Sex: 0

DRUGS (9)
  1. SOLIRIS 300MG [Suspect]
     Indication: PAROXYSMAL NOCTURNAL HAEMOGLOBINURIA
     Dosage: 600 MG, SINGLE
     Route: 042
     Dates: start: 20080509, end: 20080509
  2. SOLIRIS 300MG [Suspect]
     Dosage: 600 MG, SINGLE
     Route: 042
     Dates: start: 20080530, end: 20080530
  3. SOLIRIS 300MG [Suspect]
     Dosage: 900 MG, Q2W
     Route: 042
     Dates: start: 20080606, end: 20080620
  4. SOLIRIS 300MG [Suspect]
     Dosage: 900 MG, Q2W
     Route: 042
     Dates: start: 20090209, end: 20090727
  5. SOLIRIS 300MG [Suspect]
     Dosage: 900 MG, Q2W
     Route: 042
     Dates: start: 20090827, end: 20091202
  6. SOLIRIS 300MG [Suspect]
     Dosage: 900 MG, SINGLE
     Route: 042
     Dates: start: 20100121, end: 20100121
  7. SOLIRIS 300MG [Suspect]
     Dosage: 900 MG, SINGLE
     Route: 042
     Dates: start: 20100210, end: 20100210
  8. SOLIRIS 300MG [Suspect]
     Dosage: 900 MG, Q2W
     Route: 042
     Dates: start: 20100224
  9. PREDNISONE [Concomitant]
     Indication: WHITE BLOOD CELL COUNT DECREASED
     Dosage: 60 MG, BID
     Route: 048
     Dates: start: 20101105

REACTIONS (5)
  - Pancytopenia [Not Recovered/Not Resolved]
  - Blood lactate dehydrogenase increased [Recovered/Resolved]
  - Upper respiratory tract infection [Recovered/Resolved]
  - Coombs test positive [Unknown]
  - Marrow hyperplasia [Unknown]
